FAERS Safety Report 10672781 (Version 1)
Quarter: 2014Q4

REPORT INFORMATION
  Report Type: Report from Study
  Country: JP (occurrence: JP)
  Receive Date: 20141223
  Receipt Date: 20141223
  Transmission Date: 20150529
  Serious: Yes (Hospitalization)
  Sender: FDA-Public Use
  Company Number: JP-BRISTOL-MYERS SQUIBB COMPANY-BMS-2014-002622

PATIENT
  Sex: Female
  Weight: 54 kg

DRUGS (13)
  1. ABATACEPT [Suspect]
     Active Substance: ABATACEPT
     Indication: RHEUMATOID ARTHRITIS
     Dosage: 500 MG, UNK
     Route: 041
     Dates: start: 20120924
  2. PREDNISOLONE. [Concomitant]
     Active Substance: PREDNISOLONE
     Dosage: 4 MG, QD
     Route: 065
     Dates: start: 20121120, end: 20121217
  3. METGLUCO [Suspect]
     Active Substance: METFORMIN HYDROCHLORIDE
     Dosage: UNK
     Route: 065
     Dates: start: 20120731
  4. EQUA [Suspect]
     Active Substance: VILDAGLIPTIN
     Dosage: UNK
     Route: 065
     Dates: start: 20130212
  5. PREDNISOLONE. [Concomitant]
     Active Substance: PREDNISOLONE
     Indication: RHEUMATOID ARTHRITIS
     Dosage: 5 MG, QD
     Route: 065
  6. PREDNISOLONE. [Concomitant]
     Active Substance: PREDNISOLONE
     Dosage: 1 MG, QD
     Route: 065
     Dates: start: 20130409
  7. ALLELOCK [Suspect]
     Active Substance: OLOPATADINE HYDROCHLORIDE
     Dosage: UNK
     Route: 065
     Dates: start: 20120822
  8. SALAZOSULFAPYRIDINE [Suspect]
     Active Substance: SULFASALAZINE
     Indication: RHEUMATOID ARTHRITIS
     Dosage: 1000 MG, QD
     Route: 065
  9. PREDNISOLONE. [Concomitant]
     Active Substance: PREDNISOLONE
     Dosage: 2 MG, QD
     Route: 065
     Dates: start: 20130115, end: 20130408
  10. TAKEPRON [Suspect]
     Active Substance: LANSOPRAZOLE
     Dosage: UNK
     Route: 065
     Dates: start: 20120628
  11. PREDNISOLONE. [Concomitant]
     Active Substance: PREDNISOLONE
     Dosage: 3 MG, QD
     Route: 065
     Dates: start: 20121218, end: 20130114
  12. NOVORAPID [Suspect]
     Active Substance: INSULIN ASPART
     Dosage: UNK
     Route: 065
     Dates: start: 20110711, end: 20130211
  13. ISONARIF [Suspect]
     Active Substance: ISONIAZID\RIFAMPIN
     Dosage: UNK
     Route: 065
     Dates: start: 20120926, end: 20130211

REACTIONS (2)
  - Liver disorder [Unknown]
  - Hepatic steatosis [Unknown]
